FAERS Safety Report 8974941 (Version 2)
Quarter: 2013Q2

REPORT INFORMATION
  Report Type: Spontaneous
  Country: US (occurrence: US)
  Receive Date: 20121219
  Receipt Date: 20130409
  Transmission Date: 20140414
  Serious: Yes (Hospitalization, Other)
  Sender: FDA-Public Use
  Company Number: US-ELI_LILLY_AND_COMPANY-US201212003664

PATIENT
  Sex: Female
  Weight: 90.7 kg

DRUGS (2)
  1. CYMBALTA [Suspect]
     Indication: DEPRESSION
     Dosage: 60 MG, QD
     Route: 048
     Dates: start: 20090508, end: 20121207
  2. NITROGLYCERIN [Concomitant]

REACTIONS (13)
  - Oedema [Recovered/Resolved]
  - Blood triglycerides increased [Recovered/Resolved]
  - Crying [Recovered/Resolved]
  - Emotional disorder [Recovered/Resolved]
  - Skin disorder [Recovered/Resolved]
  - Fungal skin infection [Recovered/Resolved]
  - Irritability [Recovered/Resolved]
  - Headache [Recovered/Resolved]
  - Nausea [Recovered/Resolved]
  - Diarrhoea [Recovered/Resolved]
  - Anger [Recovered/Resolved]
  - Change in sustained attention [Recovered/Resolved]
  - Drug withdrawal syndrome [Recovered/Resolved]
